FAERS Safety Report 7562196-2 (Version None)
Quarter: 2011Q2

REPORT INFORMATION
  Report Type: 
  Country: None (occurrence: None)
  Receive Date: 20110614
  Receipt Date: 20110531
  Transmission Date: 20111010
  Serious: Yes (Hospitalization)
  Sender: FDA-Public Use
  Company Number: 1000017750

PATIENT
  Age: 43 Year
  Sex: Female

DRUGS (6)
  1. SEROQUEL (QUETIAPINE FUMARATE) (QUETIAPINE FUMARATE) [Concomitant]
  2. RISPERIDONE (RISPERIDONE) (TABLETS) (RISPERIDONE) [Concomitant]
  3. LEXAPRO [Suspect]
     Indication: DEPRESSION
     Dosage: 15 MG (15 MG, 1 IN 1 D) 10 MG (10 MG, 1 IN 1 D) 5 MG (5 MG, 1 IN 1 D)
     Dates: start: 20100101, end: 20100101
  4. LEXAPRO [Suspect]
     Indication: DEPRESSION
     Dosage: 15 MG (15 MG, 1 IN 1 D) 10 MG (10 MG, 1 IN 1 D) 5 MG (5 MG, 1 IN 1 D)
     Dates: start: 20100101, end: 20100101
  5. LEXAPRO [Suspect]
     Indication: DEPRESSION
     Dosage: 15 MG (15 MG, 1 IN 1 D) 10 MG (10 MG, 1 IN 1 D) 5 MG (5 MG, 1 IN 1 D)
     Dates: start: 20100101, end: 20100101
  6. LEXAPRO [Suspect]
     Indication: DEPRESSION
     Dosage: 5 MG (5 MG, 1 IN 1 D)
     Dates: start: 20100906

REACTIONS (3)
  - AKATHISIA [None]
  - WITHDRAWAL SYNDROME [None]
  - RESTLESSNESS [None]
